FAERS Safety Report 8892510 (Version 1)
Quarter: 2012Q4

REPORT INFORMATION
  Report Type: 
  Country: US (occurrence: US)
  Receive Date: 20121107
  Receipt Date: 20121107
  Transmission Date: 20130627
  Serious: No
  Sender: FDA-Public Use
  Company Number: US-AMGEN-USASP2011061592

PATIENT
  Age: 58 Year
  Sex: Female

DRUGS (14)
  1. ENBREL [Suspect]
     Indication: RHEUMATOID ARTHRITIS
     Dosage: 50 mg, qwk
  2. SYNTHROID [Concomitant]
     Dosage: UNK
  3. LYRICA [Concomitant]
     Dosage: UNK
  4. LOSARTAN [Concomitant]
     Dosage: UNK
  5. AMLODIPINE [Concomitant]
     Dosage: UNK
  6. FOSAMAX [Concomitant]
     Dosage: UNK
  7. METFORMIN [Concomitant]
     Dosage: UNK
  8. HYDROCHLOROTHIAZIDE [Concomitant]
     Dosage: UNK
  9. CRESTOR [Concomitant]
     Dosage: UNK
  10. ZOLOFT [Concomitant]
     Dosage: UNK
  11. MULTIVITAMIN                       /00097801/ [Concomitant]
     Dosage: UNK
  12. FISH OIL [Concomitant]
     Dosage: UNK
  13. VITAMIN D /00107901/ [Concomitant]
     Dosage: UNK
  14. ONGLYZA [Concomitant]
     Dosage: UNK

REACTIONS (1)
  - Contusion [Not Recovered/Not Resolved]
